FAERS Safety Report 13082315 (Version 1)
Quarter: 2017Q1

REPORT INFORMATION
  Report Type: Spontaneous
  Country: US (occurrence: US)
  Receive Date: 20170103
  Receipt Date: 20170103
  Transmission Date: 20170428
  Serious: No
  Sender: FDA-Public Use
  Company Number: US-009507513-1612USA003418

PATIENT
  Age: 23 Year
  Sex: Female
  Weight: 64.4 kg

DRUGS (1)
  1. NEXPLANON [Suspect]
     Active Substance: ETONOGESTREL
     Indication: CONTRACEPTION
     Dosage: 3 YEAR IMPLANT, IN THE LEFT ARM
     Route: 059
     Dates: start: 20160425

REACTIONS (3)
  - Implant site pain [Unknown]
  - Vaginal haemorrhage [Unknown]
  - Amenorrhoea [Recovered/Resolved]

NARRATIVE: CASE EVENT DATE: 20160425
